FAERS Safety Report 20092838 (Version 1)
Quarter: 2021Q4

REPORT INFORMATION
  Report Type: Other
  Country: None (occurrence: CA)
  Receive Date: 20211120
  Receipt Date: 20211120
  Transmission Date: 20220303
  Serious: Yes (Death, Other)
  Sender: FDA-Public Use
  Company Number: CA-NATCO Pharma Limited-2122094

PATIENT
  Age: 22 Year
  Sex: Female

DRUGS (4)
  1. ONDANSETRON HYDROCHLORIDE [Suspect]
     Active Substance: ONDANSETRON HYDROCHLORIDE
     Indication: Cyclic vomiting syndrome
  2. HALOPERIDOL [Suspect]
     Active Substance: HALOPERIDOL
  3. OLANZAPINE [Suspect]
     Active Substance: OLANZAPINE
  4. DIMENHYDRINATE [Concomitant]
     Active Substance: DIMENHYDRINATE

REACTIONS (7)
  - Torsade de pointes [None]
  - Cardiac arrest [None]
  - Brain death [None]
  - Hypoxic-ischaemic encephalopathy [None]
  - Ventricular fibrillation [None]
  - Electrocardiogram QT prolonged [None]
  - Hypokalaemia [None]
